FAERS Safety Report 11569513 (Version 6)
Quarter: 2020Q3

REPORT INFORMATION
  Report Type: Spontaneous
  Country: US (occurrence: US)
  Receive Date: 20150929
  Receipt Date: 20200806
  Transmission Date: 20201102
  Serious: Yes (Other)
  Sender: FDA-Public Use
  Company Number: US-PFIZER INC-2015321625

PATIENT
  Age: 48 Year
  Sex: Female

DRUGS (1)
  1. LYRICA [Suspect]
     Active Substance: PREGABALIN
     Indication: NEUROPATHY PERIPHERAL
     Dosage: 100 MG, 3X/DAY
     Dates: start: 2013

REACTIONS (7)
  - Somnolence [Unknown]
  - Muscle spasms [Unknown]
  - Gait disturbance [Unknown]
  - Nasopharyngitis [Unknown]
  - Tremor [Unknown]
  - Bedridden [Unknown]
  - Intentional product misuse [Unknown]
